FAERS Safety Report 4314973-9 (Version None)
Quarter: 2004Q1

REPORT INFORMATION
  Report Type: 
  Country: None (occurrence: None)
  Receive Date: 20040309
  Receipt Date: 20040224
  Transmission Date: 20041129
  Serious: Yes (Life-Threatening)
  Sender: FDA-Public Use
  Company Number: EWC040338209

PATIENT
  Age: 70 Year
  Sex: Female

DRUGS (3)
  1. PROZAC [Suspect]
     Indication: DEPRESSION
     Dosage: 20 MG/2 DAY
     Dates: start: 20030501, end: 20030811
  2. PARMODALIN [Concomitant]
  3. PAROXETINE HCL [Concomitant]

REACTIONS (4)
  - COMA [None]
  - HYPERHIDROSIS [None]
  - HYPERTHERMIA [None]
  - TREMOR [None]
